FAERS Safety Report 8375232-0 (Version None)
Quarter: 2012Q2

REPORT INFORMATION
  Report Type: 
  Country: None (occurrence: None)
  Receive Date: 20120522
  Receipt Date: 20120510
  Transmission Date: 20120825
  Serious: Yes (Other)
  Sender: FDA-Public Use
  Company Number: GB-AMGEN-GBRSP2012016909

PATIENT
  Age: 41 Year
  Sex: Male
  Weight: 73 kg

DRUGS (1)
  1. ENBREL [Suspect]
     Indication: ANKYLOSING SPONDYLITIS
     Dosage: 25 MG, 2X/WEEK
     Route: 058
     Dates: start: 20060616

REACTIONS (9)
  - VISION BLURRED [None]
  - INFLAMMATION [None]
  - PARAESTHESIA [None]
  - MYOSITIS [None]
  - OPTIC NEURITIS [None]
  - EYE PAIN [None]
  - MULTIPLE SCLEROSIS [None]
  - EXOPHTHALMOS [None]
  - DEMYELINATION [None]
